FAERS Safety Report 20819993 (Version 1)
Quarter: 2022Q2

REPORT INFORMATION
  Report Type: Report from Study
  Country: CR (occurrence: CR)
  Receive Date: 20220512
  Receipt Date: 20220512
  Transmission Date: 20220721
  Serious: Yes (Other)
  Sender: FDA-Public Use
  Company Number: CR-NOVARTISPH-NVSC2022CR107080

PATIENT
  Age: 72 Year
  Sex: Male

DRUGS (2)
  1. DIOVAN [Suspect]
     Active Substance: VALSARTAN
     Indication: Product used for unknown indication
     Dosage: 160 MG, QD (ONE IN THE MORNING)
     Route: 065
  2. DIOVAN [Suspect]
     Active Substance: VALSARTAN
     Dosage: 320 MG, QD (ONE AT THE NIGHT)
     Route: 065

REACTIONS (6)
  - Renal failure [Unknown]
  - Hypoacusis [Unknown]
  - Fall [Unknown]
  - Ill-defined disorder [Unknown]
  - Cardiac disorder [Unknown]
  - Off label use [Unknown]
